FAERS Safety Report 6168517-X (Version None)
Quarter: 2009Q2

REPORT INFORMATION
  Report Type: 
  Country: None (occurrence: None)
  Receive Date: 20090427
  Receipt Date: 20090422
  Transmission Date: 20091009
  Serious: Yes (Hospitalization, Disabling, Other)
  Sender: FDA-Public Use
  Company Number: B0555392A

PATIENT
  Sex: Male

DRUGS (1)
  1. KREDEX [Suspect]
     Indication: DRUG USE FOR UNKNOWN INDICATION
     Dosage: 6.25MG PER DAY
     Route: 065
     Dates: end: 20080701

REACTIONS (10)
  - ARTERIAL THROMBOSIS [None]
  - ARTHRITIS [None]
  - COMPLEX REGIONAL PAIN SYNDROME [None]
  - CYANOSIS [None]
  - DEPRESSION [None]
  - EXTREMITY NECROSIS [None]
  - FATIGUE [None]
  - OEDEMA [None]
  - PAIN [None]
  - THROMBOSIS [None]
